FAERS Safety Report 6274851-5 (Version None)
Quarter: 2009Q4

REPORT INFORMATION
  Report Type: 
  Country: None (occurrence: None)
  Receive Date: 20090717
  Receipt Date: 20090710
  Transmission Date: 20100525
  Serious: Yes (Other)
  Sender: FDA-Public Use
  Company Number: 2009SP015240

PATIENT
  Age: 50 Year
  Sex: Male

DRUGS (2)
  1. INTERFERON ALFA-2B RECOMBINANT (S-P) [Suspect]
     Indication: MALIGNANT MELANOMA
  2. INTERLUEKIN-2 [Suspect]
     Indication: MALIGNANT MELANOMA

REACTIONS (2)
  - MELANOCYTIC NAEVUS [None]
  - METASTASES TO SMALL INTESTINE [None]
